FAERS Safety Report 6239674-1 (Version None)
Quarter: 2009Q2

REPORT INFORMATION
  Report Type: 
  Country: None (occurrence: None)
  Receive Date: 20090619
  Receipt Date: 20090610
  Transmission Date: 20091009
  Serious: Yes (Disabling)
  Sender: FDA-Public Use
  Company Number: ADE2009-0664

PATIENT
  Age: 74 Year
  Sex: Male
  Weight: 112.4 kg

DRUGS (9)
  1. SIMVASTATIN [Suspect]
     Indication: HYPERLIPIDAEMIA
     Dosage: 40 MG - ORAL
     Route: 048
     Dates: start: 20090507, end: 20090510
  2. ASPIRIN [Concomitant]
  3. BUSCOPAN [Concomitant]
  4. CIPROFLOXACIN [Concomitant]
  5. ACETAMINOPHEN W/ CODEINE [Concomitant]
  6. GLICLAZIDE [Concomitant]
  7. METFORMIN HCL [Concomitant]
  8. OMEPRAZOLE [Concomitant]
  9. RAMIPRIL [Concomitant]

REACTIONS (4)
  - ABDOMINAL PAIN [None]
  - APHASIA [None]
  - FAECAL INCONTINENCE [None]
  - MYALGIA [None]
